FAERS Safety Report 4322420-6 (Version None)
Quarter: 2004Q1

REPORT INFORMATION
  Report Type: 
  Country: None (occurrence: None)
  Receive Date: 20040319
  Receipt Date: 20040308
  Transmission Date: 20041129
  Serious: Yes (Hospitalization, Other)
  Sender: FDA-Public Use
  Company Number: 2004016403

PATIENT
  Age: 52 Year
  Sex: Male

DRUGS (3)
  1. ZITHROMAX [Suspect]
     Indication: PERICORONITIS
     Dosage: 500 MG, ORAL
     Route: 048
     Dates: start: 20040303, end: 20040303
  2. AMFENAC SODIUM (ANFENAC SODIUM) [Suspect]
     Indication: ILL-DEFINED DISORDER
     Dosage: 200 MG, ORAL
     Route: 048
  3. LIDOCAINE HYDROCHLORIDE [Suspect]
     Indication: ILL-DEFINED DISORDER

REACTIONS (1)
  - PHARYNGEAL OEDEMA [None]
